FAERS Safety Report 5683516-X (Version None)
Quarter: 2008Q1

REPORT INFORMATION
  Report Type: 
  Country: None (occurrence: None)
  Receive Date: 20080326
  Receipt Date: 20071026
  Transmission Date: 20080703
  Serious: Yes (Hospitalization)
  Sender: FDA-Public Use
  Company Number: 2008PL000035

PATIENT
  Age: 43 Year
  Sex: Male

DRUGS (2)
  1. IMURAN [Suspect]
  2. COPAXONE [Suspect]
     Indication: MULTIPLE SCLEROSIS
     Dosage: 20 MG
     Dates: start: 20070521

REACTIONS (5)
  - CHEST PAIN [None]
  - CHILLS [None]
  - DYSPNOEA [None]
  - PULMONARY EMBOLISM [None]
  - PYREXIA [None]
